FAERS Safety Report 11769243 (Version 1)
Quarter: 2015Q4

REPORT INFORMATION
  Report Type: Spontaneous
  Country: JP (occurrence: JP)
  Receive Date: 20151123
  Receipt Date: 20151123
  Transmission Date: 20160304
  Serious: Yes (Hospitalization)
  Sender: FDA-Public Use
  Company Number: JP-TEVA-611542ISR

PATIENT
  Age: 64 Year
  Sex: Male

DRUGS (4)
  1. WARFARIN [Suspect]
     Active Substance: WARFARIN
     Dosage: 2 MILLIGRAM DAILY; ON POSTOPERATIVE DAY 6
     Route: 065
  2. WARFARIN [Suspect]
     Active Substance: WARFARIN
     Dosage: 3 MILLIGRAM DAILY; ON POSTOPERATIVE DAY 9
     Route: 065
  3. FONDAPARINUX SODIUM. [Suspect]
     Active Substance: FONDAPARINUX SODIUM
     Indication: PULMONARY EMBOLISM
     Dosage: 7.5 MILLIGRAM DAILY;
     Route: 058
  4. WARFARIN [Suspect]
     Active Substance: WARFARIN
     Indication: PULMONARY EMBOLISM
     Dosage: 1 MILLIGRAM DAILY;
     Route: 065

REACTIONS (2)
  - Paraplegia [Recovered/Resolved]
  - Spinal epidural haematoma [Recovered/Resolved]
